FAERS Safety Report 14583738 (Version 2)
Quarter: 2018Q1

REPORT INFORMATION
  Report Type: Spontaneous
  Country: IT (occurrence: IT)
  Receive Date: 20180228
  Receipt Date: 20180307
  Transmission Date: 20180509
  Serious: Yes (Other)
  Sender: FDA-Public Use
  Company Number: IT-PFIZER INC-2018078948

PATIENT
  Sex: Female

DRUGS (5)
  1. OXALIPLATIN. [Suspect]
     Active Substance: OXALIPLATIN
     Indication: SMALL INTESTINE CARCINOMA METASTATIC
     Dosage: UNK,  6 CYCLIC (FOLFOX)
  2. FLUOROURACIL. [Concomitant]
     Active Substance: FLUOROURACIL
     Indication: SMALL INTESTINE CARCINOMA METASTATIC
     Dosage: UNK UNK, CYCLIC (FOLFOX)
  3. PANITUMUMAB [Concomitant]
     Active Substance: PANITUMUMAB
     Indication: SMALL INTESTINE CARCINOMA METASTATIC
     Dosage: UNK
  4. FOLINIC ACID [Concomitant]
     Active Substance: LEUCOVORIN
     Indication: SMALL INTESTINE CARCINOMA METASTATIC
     Dosage: UNK UNK, CYCLIC (FOLFOX)
  5. OXALIPLATIN. [Suspect]
     Active Substance: OXALIPLATIN
     Indication: METASTASES TO PERITONEUM

REACTIONS (1)
  - Gastrointestinal toxicity [Unknown]
